FAERS Safety Report 19088182 (Version 3)
Quarter: 2021Q2

REPORT INFORMATION
  Report Type: Report from Study
  Country: US (occurrence: US)
  Receive Date: 20210402
  Receipt Date: 20210415
  Transmission Date: 20210717
  Serious: Yes (Other)
  Sender: FDA-Public Use
  Company Number: US-VIIV HEALTHCARE LIMITED-US2021GSK073591

PATIENT
  Age: 37 Year
  Sex: Female
  Weight: 97.4 kg

DRUGS (4)
  1. NITROFURANTOIN. [Concomitant]
     Active Substance: NITROFURANTOIN
  2. CEPHALEXIN. [Concomitant]
     Active Substance: CEPHALEXIN
  3. DOLUTEGRAVIR [Suspect]
     Active Substance: DOLUTEGRAVIR
     Indication: HIV INFECTION
     Dosage: 1 TAB./CAP
     Route: 048
     Dates: start: 20200430
  4. FOLATE SUPPLEMENT [Concomitant]

REACTIONS (2)
  - COVID-19 [Unknown]
  - Stillbirth [Unknown]

NARRATIVE: CASE EVENT DATE: 20200729
